FAERS Safety Report 20758002 (Version 2)
Quarter: 2022Q2

REPORT INFORMATION
  Report Type: Report from Study
  Country: US (occurrence: US)
  Receive Date: 20220427
  Receipt Date: 20220506
  Transmission Date: 20220721
  Serious: No
  Sender: FDA-Public Use
  Company Number: US-NOVARTISTESTPH-NVSC2022US096310

PATIENT
  Sex: Female

DRUGS (1)
  1. ENTRESTO [Suspect]
     Active Substance: SACUBITRIL\VALSARTAN
     Indication: Product used for unknown indication
     Dosage: 2.5 DOSAGE FORM(49-51 TAKEN 1 AND 1/2 TABLETS QAM AND 1 TABLET PO AT NIGHT)
     Route: 048

REACTIONS (1)
  - Wrong technique in product usage process [Unknown]
